FAERS Safety Report 9973486 (Version 6)
Quarter: 2015Q2

REPORT INFORMATION
  Report Type: Spontaneous
  Country: GB (occurrence: GB)
  Receive Date: 20140306
  Receipt Date: 20150603
  Transmission Date: 20150821
  Serious: Yes (Hospitalization, Other)
  Sender: FDA-Public Use
  Company Number: GB-PFIZER INC-2014058203

PATIENT
  Age: 57 Year
  Sex: Male
  Weight: 113 kg

DRUGS (7)
  1. LANSOPRAZOLE. [Concomitant]
     Active Substance: LANSOPRAZOLE
     Dosage: 30 MG, UNK
     Route: 042
     Dates: start: 20130508
  2. AVASTIN [Suspect]
     Active Substance: BEVACIZUMAB
     Indication: GASTRIC CANCER
     Dosage: 850 MG, UNK
     Route: 042
     Dates: start: 20130508, end: 20130508
  3. XELODA [Suspect]
     Active Substance: CAPECITABINE
     Indication: GASTRIC CANCER
     Dosage: 2500 MG, 2X/DAY
     Route: 048
     Dates: start: 20130508, end: 20130529
  4. PERINDOPRIL [Concomitant]
     Active Substance: PERINDOPRIL
     Dosage: 2 MG, UNK
     Route: 042
     Dates: start: 20130529
  5. CISPLATIN. [Suspect]
     Active Substance: CISPLATIN
     Indication: GASTRIC CANCER
     Dosage: 130 MG, UNK
     Route: 042
     Dates: start: 20130508, end: 20130529
  6. BISOPROLOL [Concomitant]
     Active Substance: BISOPROLOL
     Dosage: 2.5 MG, UNK
     Route: 042
     Dates: start: 20130612
  7. EPIRUBICIN HCL [Suspect]
     Active Substance: EPIRUBICIN HYDROCHLORIDE
     Indication: GASTRIC CANCER
     Dosage: 110 MG, UNK
     Route: 042
     Dates: start: 20130508, end: 20130529

REACTIONS (7)
  - Chest pain [Not Recovered/Not Resolved]
  - Abdominal pain [Unknown]
  - Pneumonitis [Unknown]
  - Atrial fibrillation [Unknown]
  - Sinus tachycardia [Unknown]
  - Dyspnoea [Recovered/Resolved]
  - Pyrexia [Recovered/Resolved]

NARRATIVE: CASE EVENT DATE: 20130525
